APPROVED DRUG PRODUCT: ATOVAQUONE
Active Ingredient: ATOVAQUONE
Strength: 750MG/5ML
Dosage Form/Route: SUSPENSION;ORAL
Application: A209750 | Product #001
Applicant: APOTEX INC
Approved: Oct 11, 2017 | RLD: No | RS: No | Type: DISCN